FAERS Safety Report 25187590 (Version 2)
Quarter: 2025Q2

REPORT INFORMATION
  Report Type: Report from Study
  Country: US (occurrence: US)
  Receive Date: 20250411
  Receipt Date: 20250603
  Transmission Date: 20250717
  Serious: Yes (Other)
  Sender: ABBVIE
  Company Number: US-ABBVIE-6093203

PATIENT
  Age: 67 Year
  Sex: Female

DRUGS (2)
  1. RINVOQ [Suspect]
     Active Substance: UPADACITINIB
     Indication: Rheumatoid arthritis
     Route: 048
  2. RINVOQ [Suspect]
     Active Substance: UPADACITINIB
     Indication: Rheumatoid arthritis
     Route: 048

REACTIONS (14)
  - Aortic valve replacement [Unknown]
  - Anaemia [Unknown]
  - Tooth fracture [Unknown]
  - Glaucoma [Unknown]
  - Diverticulitis [Unknown]
  - Headache [Unknown]
  - Aortic valve replacement [Unknown]
  - Blood pressure increased [Unknown]
  - Dyspnoea [Unknown]
  - Pain [Unknown]
  - Muscle spasms [Unknown]
  - Intentional product misuse [Unknown]
  - Hypotension [Unknown]
  - Loss of consciousness [Unknown]

NARRATIVE: CASE EVENT DATE: 20180101
